FAERS Safety Report 8371481-6 (Version None)
Quarter: 2012Q2

REPORT INFORMATION
  Report Type: 
  Country: None (occurrence: None)
  Receive Date: 20120518
  Receipt Date: 20120517
  Transmission Date: 20120825
  Serious: Yes (Other)
  Sender: FDA-Public Use
  Company Number: JP-PFIZER INC-2012065281

PATIENT
  Age: 67 Year
  Sex: Male

DRUGS (2)
  1. DIOVAN [Concomitant]
     Dosage: UNK
     Route: 048
  2. NORVASC [Suspect]
     Dosage: 5 MG, DAILY
     Route: 048

REACTIONS (1)
  - RETINAL HAEMORRHAGE [None]
